FAERS Safety Report 9501535 (Version 1)
Quarter: 2013Q3

REPORT INFORMATION
  Report Type: Spontaneous
  Country: US (occurrence: US)
  Receive Date: 20130905
  Receipt Date: 20130905
  Transmission Date: 20140515
  Serious: Yes (Hospitalization, Other)
  Sender: FDA-Public Use
  Company Number: US-ABBOTT-13P-163-1141039-00

PATIENT
  Age: 54 Year
  Sex: Male
  Weight: 75.59 kg

DRUGS (18)
  1. HYDROCODONE/ACETAMINOPHEN [Suspect]
     Indication: CANCER PAIN
     Dosage: 1 TABLET EVERY 4 HOURS AS REQUIRED
     Route: 048
     Dates: start: 20121219
  2. DACOMITINIB [Suspect]
     Indication: NON-SMALL CELL LUNG CANCER
     Dosage: COHORTS 1 AND 2 DAILY CONTINUOUS
     Route: 048
     Dates: start: 20130105, end: 20130131
  3. DOXYCYCLINE [Suspect]
     Indication: NON-SMALL CELL LUNG CANCER
     Route: 048
     Dates: start: 20130105, end: 20130131
  4. OXYCODONE HYDROCHLORIDE [Suspect]
     Indication: CANCER PAIN
     Dosage: AS NEEDED
     Route: 048
     Dates: start: 20130111
  5. LACTULOSE [Concomitant]
     Indication: CONSTIPATION
     Dates: start: 20130201
  6. PROMETHAZINE [Concomitant]
     Indication: NAUSEA
     Dosage: EVERY 6 HOURS AS REQUIRED
     Dates: start: 20130118
  7. PROMETHAZINE [Concomitant]
     Indication: VOMITING
  8. OMEPRAZOLE [Concomitant]
     Indication: NAUSEA
     Dates: start: 20130111
  9. OMEPRAZOLE [Concomitant]
     Indication: VOMITING
  10. IBUPROFEN [Concomitant]
     Indication: CANCER PAIN
     Dates: start: 20130104
  11. ACETYLSALICYLIC ACID [Concomitant]
     Indication: PROPHYLAXIS
     Dates: start: 20120808
  12. HYDROCHLOROTHIAZIDE [Concomitant]
     Indication: HYPERTENSION
     Dates: start: 20120606
  13. ONDANSETRON [Concomitant]
     Indication: NAUSEA
     Dosage: EVERY 8 HOURS AS REQUIRED
     Dates: start: 20120511
  14. ONDANSETRON [Concomitant]
     Indication: VOMITING
  15. PROCHLORPERAZINE MALEATE [Concomitant]
     Indication: NAUSEA
     Dosage: EVERY 6 HOURS AS NEEDED
     Dates: start: 20120511
  16. PROCHLORPERAZINE MALEATE [Concomitant]
     Indication: VOMITING
  17. DEXAMETHASONE [Concomitant]
     Indication: PREMEDICATION
     Dates: start: 20130204
  18. DEXAMETHASONE [Concomitant]
     Indication: CHEMOTHERAPY

REACTIONS (5)
  - Metastases to spine [Unknown]
  - Constipation [Recovered/Resolved]
  - Vomiting [Recovered/Resolved]
  - Nausea [Recovered/Resolved]
  - Mucosal inflammation [Unknown]
